FAERS Safety Report 10565642 (Version 1)
Quarter: 2014Q4

REPORT INFORMATION
  Report Type: Spontaneous
  Country: US (occurrence: None)
  Receive Date: 20141104
  Receipt Date: 20141104
  Transmission Date: 20150529
  Serious: Yes (Other)
  Sender: FDA-Public Use
  Company Number: None

PATIENT
  Age: 64 Year
  Sex: Female
  Weight: 48.08 kg

DRUGS (1)
  1. NEURONTIN [Suspect]
     Active Substance: GABAPENTIN
     Indication: SCIATICA
     Dosage: 2 PILLS
     Route: 048
     Dates: start: 20140123, end: 20140920

REACTIONS (5)
  - Intracranial aneurysm [None]
  - Abasia [None]
  - Vision blurred [None]
  - Visual impairment [None]
  - Balance disorder [None]

NARRATIVE: CASE EVENT DATE: 20140823
